FAERS Safety Report 24258032 (Version 1)
Quarter: 2024Q3

REPORT INFORMATION
  Report Type: Spontaneous
  Country: DE (occurrence: DE)
  Receive Date: 20240828
  Receipt Date: 20240828
  Transmission Date: 20241017
  Serious: Yes (Hospitalization)
  Sender: ACCORD
  Company Number: None

PATIENT
  Age: 75 Year
  Sex: Male
  Weight: 75 kg

DRUGS (1)
  1. ALLOPURINOL [Suspect]
     Active Substance: ALLOPURINOL
     Indication: Gout
     Dates: start: 20240715, end: 20240718

REACTIONS (4)
  - Lip ulceration [Unknown]
  - Documented hypersensitivity to administered product [Unknown]
  - Purpura [Unknown]
  - Rash [Unknown]

NARRATIVE: CASE EVENT DATE: 20240717
